FAERS Safety Report 7479005-2 (Version None)
Quarter: 2011Q2

REPORT INFORMATION
  Report Type: 
  Country: None (occurrence: None)
  Receive Date: 20110513
  Receipt Date: 20110501
  Transmission Date: 20111010
  Serious: Yes (Hospitalization, Other)
  Sender: FDA-Public Use
  Company Number: FR-JNJFOC-20110502735

PATIENT
  Age: 63 Year
  Sex: Female

DRUGS (1)
  1. RISPERIDONE [Suspect]
     Indication: PRODUCT USED FOR UNKNOWN INDICATION
     Route: 030

REACTIONS (7)
  - INCOHERENT [None]
  - MUSCLE RIGIDITY [None]
  - ASTHENIA [None]
  - DELIRIUM [None]
  - HOSPITALISATION [None]
  - TACHYCARDIA [None]
  - INCORRECT ROUTE OF DRUG ADMINISTRATION [None]
